FAERS Safety Report 24229091 (Version 1)
Quarter: 2024Q3

REPORT INFORMATION
  Report Type: Spontaneous
  Country: US (occurrence: US)
  Receive Date: 20240820
  Receipt Date: 20240820
  Transmission Date: 20241016
  Serious: Yes (Other)
  Sender: REGENERON
  Company Number: US-REGENERON PHARMACEUTICALS, INC.-2024-097643

PATIENT
  Age: 56 Year
  Sex: Female

DRUGS (1)
  1. PRALUENT [Suspect]
     Active Substance: ALIROCUMAB
     Indication: Ischaemic heart disease prophylaxis
     Dosage: UNK
     Route: 065
     Dates: end: 2024

REACTIONS (2)
  - Hypersensitivity vasculitis [Unknown]
  - Eczema nummular [Unknown]
